FAERS Safety Report 23176464 (Version 1)
Quarter: 2023Q4

REPORT INFORMATION
  Report Type: Report from Study
  Country: AU (occurrence: AU)
  Receive Date: 20231113
  Receipt Date: 20231113
  Transmission Date: 20240110
  Serious: Yes (Other)
  Sender: FDA-Public Use
  Company Number: AU-ALXN-A202303202

PATIENT
  Sex: Male

DRUGS (4)
  1. ACETAMINOPHEN [Suspect]
     Active Substance: ACETAMINOPHEN
     Indication: Product used for unknown indication
     Dosage: DOSE: 292 MILLIGRAM PER KILOGRAM
     Route: 065
  2. ULTOMIRIS [Suspect]
     Active Substance: RAVULIZUMAB-CWVZ
     Indication: Atypical haemolytic uraemic syndrome
     Dosage: 3000 MILLIGRAM
     Route: 042
     Dates: start: 20200609
  3. LISINOPRIL [Concomitant]
     Active Substance: LISINOPRIL
     Indication: Proteinuria
     Dosage: 10 MILLIGRAM;
     Route: 048
     Dates: start: 2020
  4. PENICILLIN V [Concomitant]
     Active Substance: PENICILLIN V
     Indication: Prophylaxis
     Dosage: 500 MILLIGRAM;
     Route: 048
     Dates: start: 2010

REACTIONS (3)
  - Abdominal pain [Recovered/Resolved]
  - Intentional overdose [Unknown]
  - Stress [Unknown]

NARRATIVE: CASE EVENT DATE: 20230310
